FAERS Safety Report 25064923 (Version 1)
Quarter: 2025Q1

REPORT INFORMATION
  Report Type: Spontaneous
  Country: US (occurrence: None)
  Receive Date: 20250311
  Receipt Date: 20250311
  Transmission Date: 20250408
  Serious: Yes (Other)
  Sender: FDA-CTU
  Company Number: None

PATIENT
  Age: 79 Year
  Sex: Female

DRUGS (2)
  1. LENALIDOMIDE [Suspect]
     Active Substance: LENALIDOMIDE
     Indication: Plasma cell myeloma
     Dosage: 25MG QD ORAL??STOP: ON HOLD?
     Route: 048
     Dates: start: 20241212
  2. XARELTO [Suspect]
     Active Substance: RIVAROXABAN

REACTIONS (2)
  - Haematuria [None]
  - Deep vein thrombosis [None]

NARRATIVE: CASE EVENT DATE: 20250310
